FAERS Safety Report 4966259-7 (Version None)
Quarter: 2006Q1

REPORT INFORMATION
  Report Type: 
  Country: None (occurrence: None)
  Receive Date: 20060201
  Receipt Date: 20051115
  Transmission Date: 20060701
  Serious: No
  Sender: FDA-Public Use
  Company Number: 2005PV005068

PATIENT
  Age: 53 Year
  Sex: Female
  Weight: 71.6683 kg

DRUGS (5)
  1. BYETTA [Suspect]
     Indication: DIABETES MELLITUS NON-INSULIN-DEPENDENT
     Dosage: 10 MCG;BID;SC
     Route: 058
     Dates: start: 20050919
  2. AVANDIA [Concomitant]
  3. GLUCOTROL [Concomitant]
  4. MINISGERINOL [Concomitant]
  5. LANTUS [Concomitant]

REACTIONS (1)
  - INJECTION SITE PAIN [None]
